FAERS Safety Report 9861920 (Version 1)
Quarter: 2014Q1

REPORT INFORMATION
  Report Type: Report from Study
  Country: CA (occurrence: CA)
  Receive Date: 20140203
  Receipt Date: 20140203
  Transmission Date: 20141002
  Serious: Yes (Other)
  Sender: FDA-Public Use
  Company Number: CA-ROCHE-1339331

PATIENT
  Sex: Female
  Weight: 67.1 kg

DRUGS (5)
  1. RITUXAN [Suspect]
     Indication: RHEUMATOID ARTHRITIS
     Dosage: FREQUENCY:  DAY 1 AND DAY 15
     Route: 042
     Dates: start: 20070112
  2. DIPHENHYDRAMINE HCL [Concomitant]
     Route: 048
     Dates: start: 20090508
  3. ACETAMINOPHEN [Concomitant]
     Route: 048
     Dates: start: 20090508
  4. METHYLPREDNISOLONE [Concomitant]
     Route: 042
     Dates: start: 20090508
  5. SYMBICORT [Concomitant]

REACTIONS (2)
  - Osteoarthritis [Unknown]
  - Arthralgia [Unknown]
